FAERS Safety Report 21269157 (Version 2)
Quarter: 2022Q4

REPORT INFORMATION
  Report Type: Spontaneous
  Country: US (occurrence: US)
  Receive Date: 20220830
  Receipt Date: 20221013
  Transmission Date: 20230112
  Serious: No
  Sender: FDA-Public Use
  Company Number: US-ALXN-A202209192

PATIENT
  Age: 10 Year
  Sex: Male
  Weight: 74 kg

DRUGS (2)
  1. STRENSIQ [Suspect]
     Active Substance: ASFOTASE ALFA
     Indication: Hypophosphatasia
     Dosage: 70 MG, TIW
     Route: 065
     Dates: start: 20170219
  2. STRENSIQ [Suspect]
     Active Substance: ASFOTASE ALFA
     Dosage: 140 MG, TIW
     Route: 065
     Dates: end: 2021

REACTIONS (1)
  - Weight increased [Not Recovered/Not Resolved]

NARRATIVE: CASE EVENT DATE: 20170401
